FAERS Safety Report 5266453-4 (Version None)
Quarter: 2007Q1

REPORT INFORMATION
  Report Type: 
  Country: None (occurrence: None)
  Receive Date: 20070315
  Receipt Date: 20070305
  Transmission Date: 20070707
  Serious: Yes (Death)
  Sender: FDA-Public Use
  Company Number: KR-GILEAD-2007-0011453

PATIENT
  Age: 79 Year
  Sex: Male

DRUGS (5)
  1. ADEFOVIR DIPIVOXIL [Suspect]
     Indication: HEPATITIS B
     Route: 048
     Dates: start: 20060407, end: 20060511
  2. LAMIVUDINE [Concomitant]
     Dates: start: 20041112, end: 20060511
  3. URSA [Concomitant]
  4. PROTEIN SUPPLEMENT [Concomitant]
     Dates: start: 20041215, end: 20060511
  5. UNKNOWN [Concomitant]
     Dates: start: 20041106

REACTIONS (1)
  - HEPATIC FAILURE [None]
